FAERS Safety Report 4586772-4 (Version None)
Quarter: 2005Q1

REPORT INFORMATION
  Report Type: 
  Country: None (occurrence: None)
  Receive Date: 20050217
  Receipt Date: 20050217
  Transmission Date: 20050727
  Serious: Yes (Hospitalization)
  Sender: FDA-Public Use
  Company Number: None

PATIENT
  Age: 79 Year
  Sex: Male
  Weight: 91 kg

DRUGS (2)
  1. BOSENTAN       NOT DOCUMENTED        NOT DOCUMENTED [Suspect]
     Indication: PULMONARY HYPERTENSION
     Dates: start: 20040623, end: 20040713
  2. WARFARIN       NOT DOCUMENTED       NOT DOCUMENTED [Suspect]
     Indication: HEART VALVE REPLACEMENT
     Dosage: .5 ALT C  1MG  QOD   ORAL
     Route: 048
     Dates: start: 19940601, end: 20040713

REACTIONS (7)
  - ASTHENIA [None]
  - DECREASED APPETITE [None]
  - FLUID RETENTION [None]
  - INTERNATIONAL NORMALISED RATIO INCREASED [None]
  - LIVER FUNCTION TEST ABNORMAL [None]
  - MALAISE [None]
  - PNEUMONIA [None]
